FAERS Safety Report 9174082 (Version 1)
Quarter: 2013Q1

REPORT INFORMATION
  Report Type: Spontaneous
  Country: US (occurrence: US)
  Receive Date: 20130320
  Receipt Date: 20130320
  Transmission Date: 20140127
  Serious: No
  Sender: FDA-Public Use
  Company Number: US-PFIZER INC-2013089033

PATIENT
  Age: 42 Year
  Sex: Male
  Weight: 76.19 kg

DRUGS (4)
  1. LYRICA [Suspect]
     Indication: NEURALGIA
     Dosage: UNK, 1X/DAY
     Dates: start: 2012
  2. AMITRIPTYLINE [Concomitant]
     Dosage: UNK
  3. DILANTIN [Concomitant]
     Indication: CONVULSION
     Dosage: 100 MG, 3X/DAY
  4. MELOXICAM [Concomitant]
     Dosage: 15 MG, 1X/DAY

REACTIONS (3)
  - Drug ineffective [Unknown]
  - Pain [Unknown]
  - Sleep disorder [Unknown]
